FAERS Safety Report 12362462 (Version 2)
Quarter: 2016Q3

REPORT INFORMATION
  Report Type: Spontaneous
  Country: US (occurrence: US)
  Receive Date: 20160512
  Receipt Date: 20160811
  Transmission Date: 20161109
  Serious: No
  Sender: FDA-Public Use
  Company Number: US-BIOGEN-2016BI00230334

PATIENT
  Age: 13 Year
  Sex: Male

DRUGS (2)
  1. ALPROLIX [Suspect]
     Active Substance: EFTRENONACOG ALFA
     Indication: FACTOR IX DEFICIENCY
     Route: 042
     Dates: start: 201602, end: 20160515
  2. ALPROLIX [Suspect]
     Active Substance: EFTRENONACOG ALFA
     Route: 042

REACTIONS (7)
  - Vomiting [Recovered/Resolved]
  - Pain [Recovered/Resolved]
  - Headache [Recovered/Resolved]
  - Pyrexia [Not Recovered/Not Resolved]
  - Nausea [Recovered/Resolved]
  - Panic attack [Recovered/Resolved]
  - Dizziness [Recovered/Resolved]

NARRATIVE: CASE EVENT DATE: 201602
